FAERS Safety Report 5579115-0 (Version None)
Quarter: 2008Q1

REPORT INFORMATION
  Report Type: 
  Country: None (occurrence: None)
  Receive Date: 20080102
  Receipt Date: 20071219
  Transmission Date: 20080703
  Serious: Yes (Other)
  Sender: FDA-Public Use
  Company Number: US-AMGEN-STX247547

PATIENT
  Sex: Female

DRUGS (8)
  1. ENBREL [Suspect]
     Indication: RHEUMATOID ARTHRITIS
     Route: 058
     Dates: start: 20021101
  2. ENBREL [Suspect]
     Route: 058
     Dates: start: 20031003
  3. ARAVA [Concomitant]
     Route: 048
     Dates: start: 20020601
  4. ARAVA [Concomitant]
  5. CALCIUM [Concomitant]
  6. VITAMIN CAP [Concomitant]
  7. GLUCOSAMINE [Concomitant]
  8. VICODIN [Concomitant]

REACTIONS (2)
  - DYSPHAGIA [None]
  - GOITRE [None]
